FAERS Safety Report 5444209-7 (Version None)
Quarter: 2007Q3

REPORT INFORMATION
  Report Type: 
  Country: None (occurrence: None)
  Receive Date: 20070906
  Receipt Date: 20070830
  Transmission Date: 20080115
  Serious: Yes (Death, Other)
  Sender: FDA-Public Use
  Company Number: US-JNJFOC-20070806602

PATIENT
  Sex: Female

DRUGS (4)
  1. TYLENOL (CAPLET) [Suspect]
     Route: 048
  2. TYLENOL (CAPLET) [Suspect]
     Indication: SUICIDE ATTEMPT
     Route: 048
  3. FLONASE [Suspect]
     Indication: RHINITIS ALLERGIC
     Route: 045
  4. MULTIPLE MEDICATIONS [Concomitant]

REACTIONS (1)
  - COMPLETED SUICIDE [None]
